FAERS Safety Report 7844826-0 (Version None)
Quarter: 2011Q4

REPORT INFORMATION
  Report Type: 
  Country: None (occurrence: None)
  Receive Date: 20111025
  Receipt Date: 20111014
  Transmission Date: 20120403
  Serious: Yes (Hospitalization)
  Sender: FDA-Public Use
  Company Number: US-GLAXOSMITHKLINE-A0950250A

PATIENT
  Sex: Male
  Weight: 96.4 kg

DRUGS (2)
  1. AVANDAMET [Suspect]
     Indication: DIABETES MELLITUS
     Route: 048
  2. AVANDIA [Suspect]
     Indication: DIABETES MELLITUS
     Dosage: 2MG TWICE PER DAY
     Route: 048

REACTIONS (6)
  - FATIGUE [None]
  - ARTERIOSCLEROSIS [None]
  - CHEST PAIN [None]
  - CARDIAC DISORDER [None]
  - HYPERTENSION [None]
  - AMNESIA [None]
